FAERS Safety Report 15881492 (Version 1)
Quarter: 2019Q1

REPORT INFORMATION
  Report Type: Spontaneous
  Country: FR (occurrence: FR)
  Receive Date: 20190128
  Receipt Date: 20190128
  Transmission Date: 20190417
  Serious: Yes (Hospitalization)
  Sender: FDA-Public Use
  Company Number: PHHY2019FR018002

PATIENT
  Age: 74 Year
  Sex: Male
  Weight: 108 kg

DRUGS (6)
  1. AUGMENTIN [Concomitant]
     Active Substance: AMOXICILLIN\CLAVULANATE POTASSIUM
     Indication: STAPHYLOCOCCAL BACTERAEMIA
     Dosage: 6 G, UNK
     Route: 065
     Dates: start: 20181116, end: 20181120
  2. LOVENOX [Concomitant]
     Active Substance: ENOXAPARIN SODIUM
     Indication: PRODUCT USED FOR UNKNOWN INDICATION
     Dosage: UNK
     Route: 058
  3. LEVOFLOXACIN. [Suspect]
     Active Substance: LEVOFLOXACIN
     Indication: STAPHYLOCOCCAL BACTERAEMIA
     Dosage: 1000 MG, QD
     Route: 048
     Dates: start: 20181116, end: 20181126
  4. CEFAZOLINE [Concomitant]
     Active Substance: CEFAZOLIN SODIUM
     Indication: STAPHYLOCOCCAL BACTERAEMIA
     Dosage: NR
     Route: 042
  5. ELIQUIS [Concomitant]
     Active Substance: APIXABAN
     Indication: PRODUCT USED FOR UNKNOWN INDICATION
     Dosage: 2 DF, QD
     Route: 048
     Dates: start: 20181121, end: 20181129
  6. AUGMENTIN [Concomitant]
     Active Substance: AMOXICILLIN\CLAVULANATE POTASSIUM
     Indication: CELLULITIS
     Dosage: 6 G, UNK
     Route: 065
     Dates: start: 20181022, end: 20181102

REACTIONS (3)
  - Vascular purpura [Recovered/Resolved]
  - Acute kidney injury [Recovered/Resolved]
  - Hypersensitivity vasculitis [Recovered/Resolved]

NARRATIVE: CASE EVENT DATE: 20181120
